FAERS Safety Report 8247307-8 (Version None)
Quarter: 2012Q1

REPORT INFORMATION
  Report Type: 
  Country: None (occurrence: None)
  Receive Date: 20120328
  Receipt Date: 20120328
  Transmission Date: 20120608
  Serious: No
  Sender: FDA-Public Use
  Company Number: None

PATIENT
  Age: 60 Year
  Sex: Male

DRUGS (3)
  1. ANCEF [Suspect]
     Dates: start: 20100210, end: 20100210
  2. CIPROFLOXACIN HCL [Suspect]
     Dates: start: 20100121, end: 20100201
  3. LORTAB [Suspect]
     Dates: start: 20100116, end: 20100124

REACTIONS (6)
  - CHILLS [None]
  - HYPERHIDROSIS [None]
  - ASPARTATE AMINOTRANSFERASE INCREASED [None]
  - ALANINE AMINOTRANSFERASE INCREASED [None]
  - BLOOD ALKALINE PHOSPHATASE INCREASED [None]
  - ROTATOR CUFF REPAIR [None]
